FAERS Safety Report 23434228 (Version 2)
Quarter: 2024Q1

REPORT INFORMATION
  Report Type: Spontaneous
  Country: CA (occurrence: CA)
  Receive Date: 20240123
  Receipt Date: 20240207
  Transmission Date: 20240410
  Serious: Yes (Death)
  Sender: FDA-Public Use
  Company Number: CA-PFIZER INC-202400021270

PATIENT
  Age: 79 Year
  Sex: Female

DRUGS (8)
  1. XELJANZ XR [Suspect]
     Active Substance: TOFACITINIB CITRATE
     Indication: Rheumatoid arthritis
     Dosage: 11 MG, 1X/DAY
     Route: 048
     Dates: start: 20220504
  2. TYLENOL EXTRA STRENGTH [Concomitant]
     Active Substance: ACETAMINOPHEN
  3. TYLENOL ARTHRITIS PAIN [Concomitant]
     Active Substance: ACETAMINOPHEN
  4. FOLIC ACID [Concomitant]
     Active Substance: FOLIC ACID
  5. GABAPENTIN [Concomitant]
     Active Substance: GABAPENTIN
  6. PREDNISONE [Concomitant]
     Active Substance: PREDNISONE
  7. METHOTREXATE [Concomitant]
     Active Substance: METHOTREXATE
     Route: 065
     Dates: start: 2015
  8. ENBREL [Concomitant]
     Active Substance: ETANERCEPT
     Dates: start: 2019

REACTIONS (1)
  - Death [Fatal]
